FAERS Safety Report 5513177-1 (Version None)
Quarter: 2007Q4

REPORT INFORMATION
  Report Type: 
  Country: None (occurrence: None)
  Receive Date: 20071112
  Receipt Date: 20070816
  Transmission Date: 20080405
  Serious: No
  Sender: FDA-Public Use
  Company Number: US-BRISTOL-MYERS SQUIBB COMPANY-13855721

PATIENT
  Age: 46 Year
  Sex: Male

DRUGS (6)
  1. SUSTIVA [Suspect]
  2. ATRIPLA [Suspect]
     Indication: HIV INFECTION
     Route: 048
     Dates: start: 20060801, end: 20070701
  3. TRUVADA [Concomitant]
  4. VYTORIN [Concomitant]
  5. PROZAC [Concomitant]
  6. XANAX [Concomitant]

REACTIONS (1)
  - GYNAECOMASTIA [None]
